FAERS Safety Report 21412893 (Version 2)
Quarter: 2022Q4

REPORT INFORMATION
  Report Type: Report from Study
  Country: PE (occurrence: PE)
  Receive Date: 20221005
  Receipt Date: 20221020
  Transmission Date: 20230112
  Serious: Yes (Hospitalization, Other)
  Sender: FDA-Public Use
  Company Number: PE-BIOGEN-2022BI01159573

PATIENT
  Age: 26 Year
  Sex: Female
  Weight: 62 kg

DRUGS (7)
  1. AVONEX [Suspect]
     Active Substance: INTERFERON BETA-1A
     Indication: Relapsing multiple sclerosis
     Route: 050
     Dates: start: 20191116, end: 20220927
  2. AVONEX [Suspect]
     Active Substance: INTERFERON BETA-1A
  3. AVONEX [Suspect]
     Active Substance: INTERFERON BETA-1A
  4. AVONEX [Suspect]
     Active Substance: INTERFERON BETA-1A
  5. GABAPENTIN [Concomitant]
     Active Substance: GABAPENTIN
     Indication: Nervous system disorder
     Route: 050
     Dates: start: 20220701
  6. AMITRIPTYLINE [Concomitant]
     Active Substance: AMITRIPTYLINE
     Indication: Product used for unknown indication
     Route: 050
  7. ORPHENADRINE [Concomitant]
     Active Substance: ORPHENADRINE
     Indication: Product used for unknown indication
     Route: 050

REACTIONS (3)
  - Blindness [Not Recovered/Not Resolved]
  - Headache [Recovered/Resolved]
  - Arthralgia [Recovered/Resolved]

NARRATIVE: CASE EVENT DATE: 20220827
